FAERS Safety Report 10272149 (Version 4)
Quarter: 2014Q3

REPORT INFORMATION
  Report Type: Spontaneous
  Country: CA (occurrence: CA)
  Receive Date: 20140702
  Receipt Date: 20140915
  Transmission Date: 20150326
  Serious: Yes (Hospitalization, Other)
  Sender: FDA-Public Use
  Company Number: CA-BEH-2014043485

PATIENT
  Age: 83 Year
  Sex: Male
  Weight: 65 kg

DRUGS (7)
  1. CA CARBONATE [Concomitant]
     Route: 048
     Dates: start: 20140610
  2. TIMOLOL [Concomitant]
     Active Substance: TIMOLOL
     Dosage: 1 GTT RT EYE DIE
     Route: 047
     Dates: start: 20140610
  3. PREDNISONE. [Concomitant]
     Active Substance: PREDNISONE
     Route: 048
     Dates: start: 20140610
  4. PRIVIGEN [Suspect]
     Active Substance: HUMAN IMMUNOGLOBULIN G
     Indication: DERMATOMYOSITIS
     Route: 042
     Dates: start: 20140610, end: 20140610
  5. PRIVIGEN [Suspect]
     Active Substance: HUMAN IMMUNOGLOBULIN G
     Route: 042
     Dates: start: 20140610, end: 20140610
  6. SALMETEROL-FLUTIRCASINE [Concomitant]
     Dosage: ONE PUFF
     Route: 055
     Dates: start: 20140610
  7. PRIVIGEN [Suspect]
     Active Substance: HUMAN IMMUNOGLOBULIN G
     Route: 042
     Dates: start: 20140610, end: 20140610

REACTIONS (9)
  - Chronic obstructive pulmonary disease [Unknown]
  - Wheezing [Recovered/Resolved]
  - Tachycardia [Recovered/Resolved]
  - Pneumonia [Unknown]
  - Acute myocardial infarction [Unknown]
  - Hypoxia [Recovered/Resolved]
  - Pulmonary embolism [Unknown]
  - Pyrexia [Recovered/Resolved]
  - Dyspnoea [Recovered/Resolved]

NARRATIVE: CASE EVENT DATE: 20140610
